FAERS Safety Report 13652467 (Version 1)
Quarter: 2017Q2

REPORT INFORMATION
  Report Type: Report from Study
  Country: CA (occurrence: CA)
  Receive Date: 20170614
  Receipt Date: 20170614
  Transmission Date: 20170830
  Serious: Yes (Other)
  Sender: FDA-Public Use
  Company Number: CA-ACTELION-A-US2017-155128

PATIENT
  Age: 67 Year
  Sex: Male

DRUGS (12)
  1. COVERSYL [Concomitant]
     Active Substance: PERINDOPRIL
  2. ADCIRCA [Concomitant]
     Active Substance: TADALAFIL
  3. ATORVASTATIN [Concomitant]
     Active Substance: ATORVASTATIN
  4. METFORMIN [Concomitant]
     Active Substance: METFORMIN HYDROCHLORIDE
  5. SPIRONOLACTONE. [Concomitant]
     Active Substance: SPIRONOLACTONE
  6. SPIRIVA [Concomitant]
     Active Substance: TIOTROPIUM BROMIDE MONOHYDRATE
  7. FUROSEMIDE. [Concomitant]
     Active Substance: FUROSEMIDE
  8. EZETIMIBE. [Concomitant]
     Active Substance: EZETIMIBE
  9. SYMBICORT [Concomitant]
     Active Substance: BUDESONIDE\FORMOTEROL FUMARATE DIHYDRATE
  10. OXYGEN. [Concomitant]
     Active Substance: OXYGEN
  11. TRACLEER [Suspect]
     Active Substance: BOSENTAN
     Indication: PULMONARY ARTERIAL HYPERTENSION
     Dosage: UNK
     Route: 048
  12. IRON [Concomitant]
     Active Substance: IRON

REACTIONS (5)
  - Lethargy [Unknown]
  - Stent placement [Not Recovered/Not Resolved]
  - Fatigue [Unknown]
  - Anaemia [Not Recovered/Not Resolved]
  - Transfusion [Not Recovered/Not Resolved]
